FAERS Safety Report 7138443-8 (Version None)
Quarter: 2010Q4

REPORT INFORMATION
  Report Type: 
  Country: None (occurrence: None)
  Receive Date: 20101206
  Receipt Date: 20101201
  Transmission Date: 20110411
  Serious: Yes (Death)
  Sender: FDA-Public Use
  Company Number: PHHY2008AR37245

PATIENT
  Sex: Female

DRUGS (4)
  1. CLOZAPINE [Suspect]
     Indication: PARKINSON'S DISEASE
     Dosage: UNK
     Dates: start: 19970115
  2. MADOPAR [Concomitant]
  3. VIDOSOL [Concomitant]
  4. CABASER [Concomitant]

REACTIONS (1)
  - CARDIO-RESPIRATORY ARREST [None]
